FAERS Safety Report 4388127-4 (Version None)
Quarter: 2004Q2

REPORT INFORMATION
  Report Type: 
  Country: None (occurrence: None)
  Receive Date: 20040629
  Receipt Date: 20040623
  Transmission Date: 20050107
  Serious: Yes (Hospitalization)
  Sender: FDA-Public Use
  Company Number: 04-06-0895

PATIENT
  Age: 57 Year
  Sex: Female

DRUGS (1)
  1. CLOZAPINE [Suspect]
     Indication: SCHIZOPHRENIA, RESIDUAL TYPE
     Dosage: 700MG QD ORAL
     Route: 048
     Dates: start: 20000901

REACTIONS (2)
  - BRONCHITIS [None]
  - RESPIRATORY FAILURE [None]
